FAERS Safety Report 9266981 (Version 1)
Quarter: 2013Q2

REPORT INFORMATION
  Report Type: Spontaneous
  Country: US (occurrence: US)
  Receive Date: 20130502
  Receipt Date: 20130502
  Transmission Date: 20140414
  Serious: Yes (Other)
  Sender: FDA-Public Use
  Company Number: US-PFIZER INC-2013131233

PATIENT
  Age: 66 Year
  Sex: Male
  Weight: 69.39 kg

DRUGS (12)
  1. REVATIO [Suspect]
     Indication: CARDIAC DISORDER
     Dosage: 20 MG, 3X/DAY
     Dates: start: 20120911
  2. REVATIO [Suspect]
     Indication: BLOOD PRESSURE ABNORMAL
  3. COUMADIN [Suspect]
     Indication: ANTICOAGULANT THERAPY
     Dosage: UNK
  4. LIPITOR [Concomitant]
     Indication: BLOOD CHOLESTEROL ABNORMAL
     Dosage: UNK
     Dates: start: 1998
  5. NEXIUM [Concomitant]
     Indication: DYSPEPSIA
     Dosage: 40 MG, UNK
  6. ATORVASTATIN [Concomitant]
     Dosage: 40 MG, DAILY
  7. POTASSIUM [Concomitant]
     Dosage: 20 MG, 2X/DAY
  8. OLANZAPINE [Concomitant]
     Dosage: 2.5MG DAILY AT BEDTIME
  9. METOCLOPRAMIDE [Concomitant]
     Dosage: 1.5 MG, 2X/DAY
  10. FERROUS SULPHATE [Concomitant]
     Dosage: 325 MG, 3X/DAY
  11. MAGNESIUM OXIDE [Concomitant]
     Dosage: 400 MG, 2X/DAY
  12. AMIODARONE [Concomitant]
     Dosage: 200 MG DAILY

REACTIONS (1)
  - Epistaxis [Recovered/Resolved]
